FAERS Safety Report 11875004 (Version 1)
Quarter: 2015Q4

REPORT INFORMATION
  Report Type: Spontaneous
  Country: IT (occurrence: IT)
  Receive Date: 20151229
  Receipt Date: 20151229
  Transmission Date: 20160305
  Serious: Yes (Hospitalization)
  Sender: FDA-Public Use
  Company Number: IT-TEVA-620628ACC

PATIENT
  Age: 40 Year
  Sex: Female
  Weight: 55 kg

DRUGS (1)
  1. CYCLOSPORINE. [Suspect]
     Active Substance: CYCLOSPORINE
     Indication: ACUTE MYELOID LEUKAEMIA
     Dosage: 100 MG DAILY
     Route: 048
     Dates: start: 20150518, end: 20150813

REACTIONS (2)
  - Acute kidney injury [Recovered/Resolved]
  - Hypercreatininaemia [Recovered/Resolved]

NARRATIVE: CASE EVENT DATE: 20150813
